FAERS Safety Report 7179048-2 (Version None)
Quarter: 2010Q4

REPORT INFORMATION
  Report Type: 
  Country: None (occurrence: None)
  Receive Date: 20101221
  Receipt Date: 20101215
  Transmission Date: 20110411
  Serious: Yes (Other)
  Sender: FDA-Public Use
  Company Number: US-PERRIGO-10US015615

PATIENT
  Sex: Male
  Weight: 61.224 kg

DRUGS (2)
  1. LICE SHMPO LIQ 866 [Suspect]
     Indication: LICE INFESTATION
     Dosage: 1 APPLICATION
     Route: 061
     Dates: start: 20101211, end: 20101211
  2. CONCERTA [Concomitant]
     Indication: ATTENTION DEFICIT/HYPERACTIVITY DISORDER
     Dosage: 54 MG, QD
     Route: 048

REACTIONS (9)
  - ACCIDENTAL EXPOSURE [None]
  - BLINDNESS TRANSIENT [None]
  - CHEMICAL BURNS OF EYE [None]
  - EYE IRRITATION [None]
  - EYELID DISORDER [None]
  - HYPERSENSITIVITY [None]
  - OCULAR HYPERAEMIA [None]
  - SUPERFICIAL INJURY OF EYE [None]
  - VISION BLURRED [None]
